FAERS Safety Report 11942777 (Version 1)
Quarter: 2016Q1

REPORT INFORMATION
  Report Type: Spontaneous
  Country: US (occurrence: US)
  Receive Date: 20160125
  Receipt Date: 20160125
  Transmission Date: 20160526
  Serious: No
  Sender: FDA-Public Use
  Company Number: US-UNITED THERAPEUTICS-UNT-2015-009354

PATIENT
  Age: 0 Year
  Sex: Female
  Weight: 6.35 kg

DRUGS (3)
  1. REMODULIN [Suspect]
     Active Substance: TREPROSTINIL
     Dosage: 0.05556  ?G/KG/MIN, CONTINUING
     Route: 058
  2. REMODULIN [Suspect]
     Active Substance: TREPROSTINIL
     Dosage: UNK
     Dates: start: 20150605
  3. REMODULIN [Suspect]
     Active Substance: TREPROSTINIL
     Indication: PULMONARY HYPERTENSION
     Dosage: 0.03535 ?G/KG/MIN, CONTINUING
     Route: 058
     Dates: start: 20150430

REACTIONS (4)
  - Infusion site discharge [Unknown]
  - Diarrhoea [Recovered/Resolved]
  - Infusion site erythema [Recovered/Resolved]
  - Infusion site nodule [Unknown]

NARRATIVE: CASE EVENT DATE: 2015
